FAERS Safety Report 8373032-9 (Version None)
Quarter: 2012Q2

REPORT INFORMATION
  Report Type: 
  Country: None (occurrence: None)
  Receive Date: 20120521
  Receipt Date: 20120511
  Transmission Date: 20120825
  Serious: Yes (Hospitalization, Other)
  Sender: FDA-Public Use
  Company Number: PH-BRISTOL-MYERS SQUIBB COMPANY-16319329

PATIENT
  Age: 38 Year
  Sex: Male

DRUGS (3)
  1. RISPERIDONE [Concomitant]
     Dosage: 1MG:26DEC11,INTERRUPTED ON 29DEC11.4MG SINCE 25FEB2012.
     Dates: start: 20111222, end: 20111229
  2. ABILIFY [Suspect]
     Indication: SCHIZOPHRENIA
     Dosage: IN6MG INCR 12MG. 5-22D11:6MG;23D11:12MG/D;26D11:1MG;29D INTRPD;10JA12:12MG;11-12JA12:18MG 24MG UNK
     Route: 048
     Dates: start: 20111205, end: 20120223
  3. ACETAMINOPHEN [Concomitant]
     Dates: start: 20120213, end: 20120214

REACTIONS (1)
  - SCHIZOPHRENIA [None]
